FAERS Safety Report 9692542 (Version 2)
Quarter: 2013Q4

REPORT INFORMATION
  Report Type: Spontaneous
  Country: AT (occurrence: AT)
  Receive Date: 20131118
  Receipt Date: 20131211
  Transmission Date: 20140711
  Serious: Yes (Death)
  Sender: FDA-Public Use
  Company Number: AT-BAYER-2013-137248

PATIENT
  Age: 59 Year
  Sex: Male
  Weight: 70 kg

DRUGS (5)
  1. STIVARGA [Suspect]
     Indication: GASTROINTESTINAL STROMAL CANCER
     Dosage: 80 MG, BID
     Route: 048
     Dates: start: 20131007, end: 20131012
  2. STIVARGA [Suspect]
     Indication: METASTASES TO PERITONEUM
  3. STIVARGA [Suspect]
     Indication: MALIGNANT ASCITES
  4. RED BLOOD CELLS [Concomitant]
     Dosage: UNK
     Dates: start: 20131008
  5. RED BLOOD CELLS [Concomitant]
     Dosage: UNK
     Dates: start: 20131011

REACTIONS (3)
  - Performance status decreased [Fatal]
  - Anaemia [Fatal]
  - Pain [None]
